FAERS Safety Report 6052424-7 (Version None)
Quarter: 2009Q1

REPORT INFORMATION
  Report Type: 
  Country: None (occurrence: None)
  Receive Date: 20090121
  Receipt Date: 20090114
  Transmission Date: 20090719
  Serious: Yes (Hospitalization)
  Sender: FDA-Public Use
  Company Number: SPV1-2008-02696

PATIENT
  Age: 27 Year
  Sex: Female
  Weight: 68.5 kg

DRUGS (5)
  1. VYVANSE [Suspect]
     Indication: ATTENTION DEFICIT/HYPERACTIVITY DISORDER
     Dosage: 30 MG, 1X/DAY:QD, ORAL; 50  MG, 1X/DAY:QD, MONDAY THROUGH FRIDAY, ORAL
     Route: 048
     Dates: start: 20081020, end: 20081027
  2. VYVANSE [Suspect]
     Indication: ATTENTION DEFICIT/HYPERACTIVITY DISORDER
     Dosage: 30 MG, 1X/DAY:QD, ORAL; 50  MG, 1X/DAY:QD, MONDAY THROUGH FRIDAY, ORAL
     Route: 048
     Dates: start: 20081028, end: 20081107
  3. NUVARING [Concomitant]
  4. NULEV /00064702/ (HYOSCYAMINE SULFATE) [Concomitant]
  5. ADDERALL 10 [Concomitant]

REACTIONS (11)
  - ANXIETY [None]
  - CELLULITIS [None]
  - CHEST PAIN [None]
  - CHILLS [None]
  - DRUG INEFFECTIVE [None]
  - ELECTROCARDIOGRAM ST SEGMENT ELEVATION [None]
  - INSOMNIA [None]
  - LYMPHADENITIS [None]
  - PAIN IN EXTREMITY [None]
  - STRESS CARDIOMYOPATHY [None]
  - VOMITING [None]
